FAERS Safety Report 6996672-8 (Version None)
Quarter: 2010Q3

REPORT INFORMATION
  Report Type: 
  Country: None (occurrence: None)
  Receive Date: 20100918
  Receipt Date: 20090803
  Transmission Date: 20110219
  Serious: No
  Sender: FDA-Public Use
  Company Number: US-WYE-H09873009

PATIENT
  Age: 70 Year
  Sex: Female
  Weight: 63.56 kg

DRUGS (2)
  1. ALAVERT [Suspect]
     Indication: HYPERSENSITIVITY
     Route: 048
     Dates: start: 20040101, end: 20090601
  2. ALAVERT [Suspect]
     Route: 048
     Dates: start: 20090601

REACTIONS (4)
  - DRUG EFFECT DECREASED [None]
  - EYE PRURITUS [None]
  - ORAL PRURITUS [None]
  - OVERDOSE [None]
